FAERS Safety Report 18412482 (Version 1)
Quarter: 2020Q4

REPORT INFORMATION
  Report Type: Report from Study
  Country: US (occurrence: US)
  Receive Date: 20201021
  Receipt Date: 20201021
  Transmission Date: 20210114
  Serious: Yes (Disabling, Other)
  Sender: FDA-Public Use
  Company Number: US-GILEAD-2020-0500348

PATIENT
  Age: 75 Year
  Sex: Male

DRUGS (9)
  1. LISINOPRIL. [Concomitant]
     Active Substance: LISINOPRIL
  2. VICTOZA [Concomitant]
     Active Substance: LIRAGLUTIDE
  3. ZOCOR [Concomitant]
     Active Substance: SIMVASTATIN
  4. VITAMIN D [COLECALCIFEROL] [Concomitant]
     Active Substance: CHOLECALCIFEROL
  5. METFORMIN [Concomitant]
     Active Substance: METFORMIN HYDROCHLORIDE
  6. TOUJEO [Concomitant]
     Active Substance: INSULIN GLARGINE
  7. SIMVASTATIN. [Concomitant]
     Active Substance: SIMVASTATIN
  8. XULTOPHY 100/3.6 [Concomitant]
     Active Substance: INSULIN DEGLUDEC\LIRAGLUTIDE
  9. IDELALISIB [Suspect]
     Active Substance: IDELALISIB
     Indication: CHRONIC LYMPHOCYTIC LEUKAEMIA
     Dosage: 100 MG, BID
     Route: 048

REACTIONS (4)
  - Full blood count increased [Unknown]
  - Decreased appetite [Unknown]
  - Lymphadenopathy [Unknown]
  - Nausea [Unknown]
